FAERS Safety Report 25009882 (Version 1)
Quarter: 2025Q1

REPORT INFORMATION
  Report Type: Spontaneous
  Country: US (occurrence: US)
  Receive Date: 20250225
  Receipt Date: 20250225
  Transmission Date: 20250408
  Serious: Yes (Other)
  Sender: ALEXION PHARMACEUTICALS
  Company Number: US-AstraZeneca-CH-00805991AP

PATIENT

DRUGS (1)
  1. BREZTRI [Suspect]
     Active Substance: BUDESONIDE\FORMOTEROL\GLYCOPYRROLATE
     Route: 065

REACTIONS (6)
  - Device use issue [Unknown]
  - Dyspnoea [Unknown]
  - Hypoacusis [Unknown]
  - Oxygen saturation decreased [Unknown]
  - Incorrect dose administered by device [Unknown]
  - Device leakage [Unknown]
